FAERS Safety Report 7603129-X (Version None)
Quarter: 2011Q3

REPORT INFORMATION
  Report Type: 
  Country: None (occurrence: None)
  Receive Date: 20110712
  Receipt Date: 20110627
  Transmission Date: 20111222
  Serious: Yes (Hospitalization, Other)
  Sender: FDA-Public Use
  Company Number: US-ELI_LILLY_AND_COMPANY-US_0404102049

PATIENT
  Age: 64 Year
  Sex: Female

DRUGS (10)
  1. DIVALPROEX SODIUM [Concomitant]
     Dosage: 1500 MG, DAILY (1/D)
  2. MIRTAZAPINE [Suspect]
     Indication: BIPOLAR DISORDER
     Dosage: 11.25 MG, DAILY (1/D)
  3. ATORVASTATIN [Concomitant]
     Dosage: 10 MG, EACH EVENING
  4. FUROSEMIDE [Concomitant]
     Dosage: 20 MG, DAILY (1/D)
  5. LISINOPRIL [Concomitant]
     Dosage: 20 MG, DAILY (1/D)
  6. SENNA [Concomitant]
     Dosage: 187 MG, EACH EVENING
  7. PILOCARPINE [Concomitant]
     Dosage: 1 UNK, DAILY (1/D)
     Route: 047
  8. FERROUS SULFATE TAB [Concomitant]
     Dosage: 300 MG, 2/D
  9. DOCUSATE SODIUM [Concomitant]
     Dosage: 100 MG, 2/D
  10. GLIPIZIDE [Concomitant]
     Dosage: 10 MG, EACH EVENING

REACTIONS (2)
  - HYPOTHERMIA [None]
  - MANIA [None]
